FAERS Safety Report 6450356-3 (Version None)
Quarter: 2009Q4

REPORT INFORMATION
  Report Type: 
  Country: None (occurrence: None)
  Receive Date: 20091123
  Receipt Date: 20091111
  Transmission Date: 20100525
  Serious: Yes (Hospitalization, Other)
  Sender: FDA-Public Use
  Company Number: GB-AMGEN-US371674

PATIENT
  Sex: Male
  Weight: 60 kg

DRUGS (2)
  1. ENBREL [Suspect]
     Indication: JUVENILE ARTHRITIS
     Route: 058
     Dates: start: 20090501, end: 20091001
  2. METHOTREXATE [Concomitant]
     Dosage: 7.5MG (FREQUENCY UNSPECIFIED)
     Route: 058
     Dates: start: 20040101, end: 20090901

REACTIONS (3)
  - CONDITION AGGRAVATED [None]
  - PROTEINURIA [None]
  - RENAL FAILURE [None]
